FAERS Safety Report 6752467-1 (Version None)
Quarter: 2010Q2

REPORT INFORMATION
  Report Type: 
  Country: None (occurrence: None)
  Receive Date: 20100601
  Receipt Date: 20100601
  Transmission Date: 20101027
  Serious: Yes (Hospitalization)
  Sender: FDA-Public Use
  Company Number: None

PATIENT
  Sex: Male

DRUGS (9)
  1. EVEROLIMUS RAD001 5 MG NOVARTIS [Suspect]
     Indication: LUNG NEOPLASM MALIGNANT
     Dosage: 5 MG QD PO
     Route: 048
  2. LISINOPRIL [Concomitant]
  3. GLIPIZIDE [Concomitant]
  4. LEVAQUIN [Concomitant]
  5. METFORMIN [Concomitant]
  6. PERCOCET [Concomitant]
  7. GEMFIBROZIL [Concomitant]
  8. DECADRON [Concomitant]
  9. LOVENOX [Concomitant]

REACTIONS (1)
  - PROSTATIC ABSCESS [None]
